FAERS Safety Report 5589411-9 (Version None)
Quarter: 2008Q1

REPORT INFORMATION
  Report Type: 
  Country: None (occurrence: None)
  Receive Date: 20080109
  Receipt Date: 20080109
  Transmission Date: 20080703
  Serious: Yes (Other)
  Sender: FDA-Public Use
  Company Number: None

PATIENT
  Age: 50 Year
  Sex: Female
  Weight: 54.4316 kg

DRUGS (2)
  1. LEVAQUIN [Suspect]
     Indication: BURKHOLDERIA CEPACIA INFECTION
     Dosage: 500MG EVERY DAY PO
     Route: 048
     Dates: start: 20071211, end: 20071223
  2. LEVAQUIN [Suspect]
     Indication: SINUSITIS
     Dosage: 500MG EVERY DAY PO
     Route: 048
     Dates: start: 20071211, end: 20071223

REACTIONS (23)
  - ARTHRALGIA [None]
  - BURNING SENSATION [None]
  - CARDIAC DISORDER [None]
  - CHEST PAIN [None]
  - DRY EYE [None]
  - EAR DISCOMFORT [None]
  - EYE PAIN [None]
  - FEELING ABNORMAL [None]
  - FEELING HOT [None]
  - GAIT DISTURBANCE [None]
  - HEADACHE [None]
  - HYPERAESTHESIA [None]
  - MALAISE [None]
  - MUSCLE SPASMS [None]
  - MUSCULOSKELETAL PAIN [None]
  - MYALGIA [None]
  - OCULAR HYPERAEMIA [None]
  - OESOPHAGEAL ULCER [None]
  - PAIN [None]
  - PARAESTHESIA [None]
  - PHOTOPHOBIA [None]
  - TINNITUS [None]
  - TONGUE ULCERATION [None]
